FAERS Safety Report 9665050 (Version 1)
Quarter: 2013Q4

REPORT INFORMATION
  Report Type: Report from Study
  Country: US (occurrence: US)
  Receive Date: 20131101
  Receipt Date: 20131101
  Transmission Date: 20140711
  Serious: Yes (Hospitalization)
  Sender: FDA-Public Use
  Company Number: GXBR2013US001907

PATIENT
  Age: 64 Year
  Sex: Female

DRUGS (11)
  1. ENOXAPARIN SODIUM [Suspect]
     Indication: DEEP VEIN THROMBOSIS
     Dosage: 80 MG, BID
     Route: 058
     Dates: start: 20121202, end: 20130912
  2. GABAPENTIN [Concomitant]
     Indication: NEURALGIA
     Dosage: UNK DF, UNK
  3. DOCUSATE [Concomitant]
     Indication: CONSTIPATION
     Dosage: UNK DF, UNK
  4. GLIPIZIDE [Concomitant]
     Indication: TYPE 2 DIABETES MELLITUS
     Dosage: UNK DF, UNK
  5. DEXAMETHASONE [Concomitant]
     Indication: NAUSEA
     Dosage: UNK DF, UNK
  6. ONDANSETRON [Concomitant]
     Indication: NAUSEA
     Dosage: UNK DF, UNK
  7. PROCHLORPERAZINE [Concomitant]
     Indication: NAUSEA
     Dosage: UNK DF, UNK
  8. OMEPRAZOLE [Concomitant]
     Indication: GASTROOESOPHAGEAL REFLUX DISEASE
     Dosage: UNK DF, UNK
  9. SENNOSIDES A+B [Concomitant]
     Indication: CONSTIPATION
     Dosage: UNK DF, UNK
  10. DAILY MULTIVITAMIN [Concomitant]
     Indication: SUPPLEMENTATION THERAPY
     Dosage: UNK DF, UNK
  11. TYLENOL [Concomitant]
     Indication: PAIN
     Dosage: UNK DF, PRN

REACTIONS (2)
  - Cellulitis [Not Recovered/Not Resolved]
  - Skin ulcer [Not Recovered/Not Resolved]
